FAERS Safety Report 5261227-2 (Version None)
Quarter: 2007Q1

REPORT INFORMATION
  Report Type: 
  Country: None (occurrence: None)
  Receive Date: 20070309
  Receipt Date: 20070227
  Transmission Date: 20070707
  Serious: Yes (Hospitalization, Other)
  Sender: FDA-Public Use
  Company Number: US-PFIZER INC-2007016057

PATIENT
  Sex: Male
  Weight: 83.9 kg

DRUGS (2)
  1. CHANTIX [Suspect]
     Indication: SMOKING CESSATION THERAPY
     Dates: start: 20070108, end: 20070201
  2. TYLENOL [Concomitant]

REACTIONS (2)
  - GALLBLADDER DISORDER [None]
  - WEIGHT DECREASED [None]
